FAERS Safety Report 7068018-0 (Version None)
Quarter: 2010Q4

REPORT INFORMATION
  Report Type: 
  Country: None (occurrence: None)
  Receive Date: 20101020
  Receipt Date: 20101006
  Transmission Date: 20110411
  Serious: Yes (Hospitalization, Other)
  Sender: FDA-Public Use
  Company Number: 2010MA003373

PATIENT
  Age: 49 Year
  Sex: Female

DRUGS (5)
  1. METFORMIN HYDROCHLORIDE [Suspect]
     Indication: TYPE 2 DIABETES MELLITUS
  2. LOSARTAN POTASSIUM [Suspect]
  3. BENDROFLUMETHIAZIDE [Concomitant]
  4. ATENOLOL [Concomitant]
  5. NON-STEROIDAL ANTI-INFLAMMATORY DRUGS [Concomitant]

REACTIONS (11)
  - ABDOMINAL PAIN LOWER [None]
  - DIARRHOEA [None]
  - DYSPNOEA [None]
  - HAEMODIALYSIS [None]
  - HYPOTENSION [None]
  - HYPOXIA [None]
  - LACTIC ACIDOSIS [None]
  - PERIARTHRITIS [None]
  - PULMONARY OEDEMA [None]
  - RENAL FAILURE ACUTE [None]
  - VOMITING [None]
